FAERS Safety Report 21236188 (Version 1)
Quarter: 2022Q3

REPORT INFORMATION
  Report Type: Spontaneous
  Country: JP (occurrence: JP)
  Receive Date: 20220822
  Receipt Date: 20220822
  Transmission Date: 20221027
  Serious: Yes (Death)
  Sender: FDA-Public Use
  Company Number: JP-JNJFOC-20201034509

PATIENT
  Age: 62 Year
  Sex: Male

DRUGS (6)
  1. UPTRAVI [Suspect]
     Active Substance: SELEXIPAG
     Indication: Pulmonary arterial hypertension
     Route: 048
     Dates: start: 20200114, end: 2020
  2. UPTRAVI [Suspect]
     Active Substance: SELEXIPAG
     Dosage: 1.6 MG, QD
     Route: 048
     Dates: start: 2020, end: 2020
  3. UPTRAVI [Suspect]
     Active Substance: SELEXIPAG
     Route: 048
     Dates: start: 2020
  4. UPTRAVI [Suspect]
     Active Substance: SELEXIPAG
     Dosage: 0.6 MG/ 12 HOURS
     Route: 048
     Dates: end: 20220809
  5. REVATIO [Concomitant]
     Active Substance: SILDENAFIL CITRATE
     Indication: Pulmonary arterial hypertension
  6. NIFEDIPINE [Concomitant]
     Active Substance: NIFEDIPINE
     Indication: Hypertension

REACTIONS (2)
  - Cardiac failure [Fatal]
  - Oedema [Unknown]

NARRATIVE: CASE EVENT DATE: 20200901
